FAERS Safety Report 6307514-8 (Version None)
Quarter: 2009Q3

REPORT INFORMATION
  Report Type: 
  Country: None (occurrence: None)
  Receive Date: 20090813
  Receipt Date: 20090812
  Transmission Date: 20100115
  Serious: Yes (Other)
  Sender: FDA-Public Use
  Company Number: GB-BRISTOL-MYERS SQUIBB COMPANY-14703904

PATIENT
  Age: 21 Year
  Sex: Female

DRUGS (1)
  1. ABILIFY [Suspect]
     Indication: PSYCHOTIC DISORDER
     Dosage: NOV08-28APR09:10MG 28APR09-ONGOING:15MG
     Route: 048
     Dates: start: 20081101

REACTIONS (2)
  - EMOTIONAL DISORDER [None]
  - MASKED FACIES [None]
